FAERS Safety Report 5080457-6 (Version None)
Quarter: 2006Q3

REPORT INFORMATION
  Report Type: 
  Country: None (occurrence: None)
  Receive Date: 20060815
  Receipt Date: 20060804
  Transmission Date: 20061208
  Serious: Yes (Other)
  Sender: FDA-Public Use
  Company Number: GB-BRISTOL-MYERS SQUIBB COMPANY-13465554

PATIENT
  Age: 25 Year
  Sex: Male

DRUGS (4)
  1. CISPLATIN [Suspect]
     Indication: TESTIS CANCER
  2. ETOPOSIDE [Suspect]
     Indication: TESTIS CANCER
  3. DEXAMETHASONE [Suspect]
     Indication: TESTIS CANCER
  4. BLEOMYCIN [Suspect]
     Indication: TESTIS CANCER

REACTIONS (2)
  - GROIN PAIN [None]
  - OSTEONECROSIS [None]
